FAERS Safety Report 14058132 (Version 3)
Quarter: 2022Q4

REPORT INFORMATION
  Report Type: Report from Study
  Country: US (occurrence: US)
  Receive Date: 20171006
  Receipt Date: 20221215
  Transmission Date: 20230113
  Serious: Yes (Death, Other)
  Sender: FDA-Public Use
  Company Number: US-PFIZER INC-2017428901

PATIENT

DRUGS (6)
  1. VINCRISTINE SULFATE [Suspect]
     Active Substance: VINCRISTINE SULFATE
     Indication: Retinoblastoma
     Dosage: 0.05 MG/KG, DAILY (4 CYCLES) (IV PUSH, DAYS 0, 7, 14)
     Route: 042
  2. CISPLATIN [Suspect]
     Active Substance: CISPLATIN
     Indication: Retinoblastoma
     Dosage: 3.5 MG/KG, DAILY (4 CYCLES) (IV OVER 6 HOURS, DAY 0)
     Route: 042
  3. ETOPOSIDE [Suspect]
     Active Substance: ETOPOSIDE
     Indication: Retinoblastoma
     Dosage: 4 MG/KG, DAILY (4 CYCLES) (IV OVER 1 HOUR, DAYS 1 AND 2)
     Route: 042
  4. CYCLOPHOSPHAMIDE [Suspect]
     Active Substance: CYCLOPHOSPHAMIDE
     Indication: Retinoblastoma
     Dosage: 65 MG/KG, DAILY (4 CYCLES) (IV OVER 1 HOUR, DAYS 1 AND 2)
     Route: 042
  5. MESNA [Suspect]
     Active Substance: MESNA
     Indication: Retinoblastoma
     Dosage: 40 MG/KG, DAILY (4 CYCLES) (IV OVER 24 HOURS, DAYS 1 AND 2)
     Route: 042
  6. FILGRASTIM [Suspect]
     Active Substance: FILGRASTIM
     Indication: Retinoblastoma
     Dosage: 5 UG/KG, DAILY (4 CYCLES) (SC, DAYS 3+)
     Route: 058

REACTIONS (1)
  - Sepsis [Fatal]
